FAERS Safety Report 17700789 (Version 9)
Quarter: 2024Q2

REPORT INFORMATION
  Report Type: Report from Study
  Country: US (occurrence: US)
  Receive Date: 20200423
  Receipt Date: 20240510
  Transmission Date: 20240716
  Serious: Yes (Other)
  Sender: FDA-Public Use
  Company Number: US-TAKEDA-2020TUS019493

PATIENT
  Age: 59 Year
  Sex: Male

DRUGS (3)
  1. IXAZOMIB [Suspect]
     Active Substance: IXAZOMIB
     Indication: Plasma cell myeloma
     Dosage: 4 MILLIGRAM
     Route: 048
     Dates: start: 20200331
  2. IXAZOMIB [Suspect]
     Active Substance: IXAZOMIB
     Dosage: 4 MILLIGRAM
     Route: 048
     Dates: start: 202201
  3. REVLIMID [Suspect]
     Active Substance: LENALIDOMIDE
     Indication: Plasma cell myeloma
     Dosage: 10 MILLIGRAM
     Route: 065

REACTIONS (10)
  - COVID-19 [Recovered/Resolved]
  - Weight increased [Unknown]
  - Pain [Unknown]
  - Swelling [Unknown]
  - Pruritus [Unknown]
  - Dry skin [Unknown]
  - Skin discolouration [Unknown]
  - Nausea [Unknown]
  - Vomiting [Unknown]
  - Product storage error [Unknown]

NARRATIVE: CASE EVENT DATE: 20200401
